FAERS Safety Report 18740861 (Version 1)
Quarter: 2021Q1

REPORT INFORMATION
  Report Type: Spontaneous
  Country: US (occurrence: US)
  Receive Date: 20210114
  Receipt Date: 20210114
  Transmission Date: 20210419
  Serious: Yes (Hospitalization)
  Sender: FDA-Public Use
  Company Number: None

PATIENT
  Sex: Male

DRUGS (3)
  1. REPATHA [Suspect]
     Active Substance: EVOLOCUMAB
     Indication: PRODUCT USED FOR UNKNOWN INDICATION
     Dosage: ?          OTHER FREQUENCY:EVERY TWO WEEKS;?
     Route: 058
     Dates: start: 20201103
  2. CLONIDINE, OZEMPIC, METFORMIN [Concomitant]
  3. PREGABALIN, CYANOCOBALAMIN, GABAPENTIN, CLOPIDOGREL, COLCHICINE [Concomitant]

REACTIONS (1)
  - Hospitalisation [None]
